FAERS Safety Report 21286987 (Version 1)
Quarter: 2022Q3

REPORT INFORMATION
  Report Type: Spontaneous
  Country: US (occurrence: US)
  Receive Date: 20220902
  Receipt Date: 20220902
  Transmission Date: 20221027
  Serious: Yes (Hospitalization)
  Sender: FDA-Public Use
  Company Number: US-STRIDES ARCOLAB LIMITED-2022SP010938

PATIENT
  Age: 19 Year
  Sex: Female

DRUGS (1)
  1. AMOXICILLIN [Suspect]
     Active Substance: AMOXICILLIN
     Indication: Infectious mononucleosis
     Dosage: 875 MILLIGRAM, BID
     Route: 065

REACTIONS (2)
  - Drug eruption [Recovered/Resolved]
  - Off label use [Unknown]
